FAERS Safety Report 8539663-8 (Version None)
Quarter: 2012Q3

REPORT INFORMATION
  Report Type: 
  Country: None (occurrence: None)
  Receive Date: 20120726
  Receipt Date: 20110720
  Transmission Date: 20120928
  Serious: No
  Sender: FDA-Public Use
  Company Number: US-ASTRAZENECA-2007UW19774

PATIENT
  Age: 15626 Day
  Sex: Male
  Weight: 86.2 kg

DRUGS (22)
  1. PRAVASTATIN SODIUM [Concomitant]
     Route: 065
  2. HALDOL (HALOPERDOL) [Concomitant]
     Route: 065
     Dates: start: 20010101
  3. LITHEMUM [Concomitant]
     Route: 065
     Dates: start: 20040101
  4. BENZTROPINE MESYLATE [Concomitant]
     Dosage: 1-2 MG
     Route: 065
  5. INSULIN [Concomitant]
     Route: 065
  6. SEROQUEL [Suspect]
     Dosage: 25-200 MG
     Route: 048
     Dates: start: 20040619
  7. LORAZEPAM [Concomitant]
     Dosage: 1-2 MG
     Route: 065
  8. SEROQUEL [Suspect]
     Indication: SCHIZOPHRENIA
     Dosage: VARIED DOSES, INCLUDING BUT NOT LIMITED TO 600 MG
     Route: 048
     Dates: start: 20031001
  9. SOLIAN (AMISULPRIDE) [Concomitant]
     Dosage: VARIOUS DOSES, 3MG PER DAY
     Route: 065
     Dates: start: 20030101
  10. ZYPREXA/SYMBYAX (OLANZAPINE) [Concomitant]
     Route: 065
     Dates: start: 20010101
  11. TRILEPTA [Concomitant]
     Route: 065
     Dates: start: 20050101
  12. GLUCOPHAGE [Concomitant]
     Route: 065
  13. RISPERIDONE [Concomitant]
     Route: 065
  14. CELEBREX [Concomitant]
     Route: 065
  15. ALBUTEROL [Concomitant]
     Dates: start: 20050805
  16. SEROQUEL [Suspect]
     Indication: BIPOLAR DISORDER
     Dosage: VARIED DOSES, INCLUDING BUT NOT LIMITED TO 600 MG
     Route: 048
     Dates: start: 20031001
  17. SEROQUEL [Suspect]
     Dosage: 25-200 MG
     Route: 048
     Dates: start: 20040619
  18. GEODON [Concomitant]
     Route: 065
  19. TRAZODONE HYDROCHLORIDE [Concomitant]
     Dosage: 30-50 MG
     Route: 065
  20. OXCARBAZEPINE [Concomitant]
     Route: 065
  21. ACETAMINOPHEN [Concomitant]
     Route: 065
  22. IBUPROFEN [Concomitant]
     Dosage: 400-600 MG
     Route: 065

REACTIONS (9)
  - HALLUCINATION, AUDITORY [None]
  - WEIGHT INCREASED [None]
  - SUNBURN [None]
  - SINUSITIS [None]
  - ARTHRALGIA [None]
  - DIABETES MELLITUS INADEQUATE CONTROL [None]
  - DIABETES MELLITUS [None]
  - OROPHARYNGEAL PAIN [None]
  - PAIN [None]
